FAERS Safety Report 4622378-6 (Version None)
Quarter: 2005Q1

REPORT INFORMATION
  Report Type: 
  Country: None (occurrence: None)
  Receive Date: 20050324
  Receipt Date: 20050324
  Transmission Date: 20050727
  Serious: Yes (Hospitalization)
  Sender: FDA-Public Use
  Company Number: None

PATIENT
  Age: 44 Year
  Sex: Male
  Weight: 114.76 kg

DRUGS (6)
  1. INFERGEN [Suspect]
     Indication: HEPATITIS C
     Dosage: 15 MCG TIW SUBCUTANEOUS
     Route: 058
     Dates: start: 20031118, end: 20040830
  2. RIBAVIRIN [Suspect]
     Indication: HEPATITIS C
     Dosage: 200 MG BID ORAL
     Route: 048
     Dates: start: 20031126, end: 20040830
  3. MICRONASE [Concomitant]
  4. PROZAC [Concomitant]
  5. PRINIVIL [Concomitant]
  6. ANTABUSE [Concomitant]

REACTIONS (1)
  - ALCOHOLISM [None]
